FAERS Safety Report 23067474 (Version 1)
Quarter: 2023Q4

REPORT INFORMATION
  Report Type: Spontaneous
  Country: US (occurrence: US)
  Receive Date: 20231016
  Receipt Date: 20231016
  Transmission Date: 20240109
  Serious: Yes (Other)
  Sender: FDA-Public Use
  Company Number: US-NOVOPROD-1123914

PATIENT
  Age: 71 Year
  Sex: Female

DRUGS (1)
  1. OZEMPIC [Suspect]
     Active Substance: SEMAGLUTIDE
     Indication: Diabetes mellitus
     Dosage: UNK
     Route: 058
     Dates: start: 2021

REACTIONS (6)
  - Breast cancer female [Not Recovered/Not Resolved]
  - Carpal tunnel syndrome [Not Recovered/Not Resolved]
  - Psoriatic arthropathy [Not Recovered/Not Resolved]
  - Spinal operation [Not Recovered/Not Resolved]
  - Trigger finger [Not Recovered/Not Resolved]
  - Hip deformity [Not Recovered/Not Resolved]

NARRATIVE: CASE EVENT DATE: 20210101
